FAERS Safety Report 4909454-5 (Version None)
Quarter: 2006Q1

REPORT INFORMATION
  Report Type: 
  Country: None (occurrence: None)
  Receive Date: 20060209
  Receipt Date: 20060209
  Transmission Date: 20060701
  Serious: Yes (Death)
  Sender: FDA-Public Use
  Company Number: None

PATIENT
  Age: 80 Year
  Sex: Female
  Weight: 61.2356 kg

DRUGS (1)
  1. AMIODARONE 200 MG [Suspect]
     Indication: ATRIAL FIBRILLATION
     Dosage: 1 TABLET DAILY
     Dates: start: 20041101, end: 20050630

REACTIONS (9)
  - ACTIVITIES OF DAILY LIVING IMPAIRED [None]
  - COMA [None]
  - DYSPNOEA [None]
  - ENDOTRACHEAL INTUBATION COMPLICATION [None]
  - FATIGUE [None]
  - HAEMOPTYSIS [None]
  - HYPOXIC ENCEPHALOPATHY [None]
  - PNEUMONIA PRIMARY ATYPICAL [None]
  - PULMONARY TOXICITY [None]
